FAERS Safety Report 25343659 (Version 1)
Quarter: 2025Q2

REPORT INFORMATION
  Report Type: Spontaneous
  Country: US (occurrence: None)
  Receive Date: 20250520
  Receipt Date: 20250520
  Transmission Date: 20250717
  Serious: No
  Sender: FDA-CTU
  Company Number: None

PATIENT

DRUGS (1)
  1. SIMVASTATIN [Suspect]
     Active Substance: SIMVASTATIN

REACTIONS (4)
  - Insurance issue [None]
  - Treatment noncompliance [None]
  - Therapeutic response decreased [None]
  - Myalgia [None]
